FAERS Safety Report 6574671-8 (Version None)
Quarter: 2010Q1

REPORT INFORMATION
  Report Type: 
  Country: None (occurrence: None)
  Receive Date: 20100209
  Receipt Date: 20100208
  Transmission Date: 20100710
  Serious: No
  Sender: FDA-Public Use
  Company Number: US-B.I. PHARMACEUTICALS,INC./RIDGEFIELD-2010-BP-01496BP

PATIENT
  Sex: Female

DRUGS (1)
  1. MOBIC [Suspect]
     Indication: OSTEOARTHRITIS
     Dosage: 15 MG
     Route: 048
     Dates: start: 20091001

REACTIONS (1)
  - TINNITUS [None]
